FAERS Safety Report 4592833-6 (Version None)
Quarter: 2005Q1

REPORT INFORMATION
  Report Type: 
  Country: None (occurrence: None)
  Receive Date: 20050222
  Receipt Date: 20050217
  Transmission Date: 20050727
  Serious: Yes (Other)
  Sender: FDA-Public Use
  Company Number: ITWYE433017FEB05

PATIENT
  Sex: Male

DRUGS (3)
  1. EFFEXOR [Suspect]
     Indication: DEPRESSION
     Route: 048
     Dates: start: 20040402, end: 20050205
  2. FLUTICASONE (FLUTICASONE, , 0) [Suspect]
     Indication: ASTHMA
     Dates: start: 20040402, end: 20050205
  3. FORADIL (FORMOTEROL FUMARATE, , 0) [Suspect]
     Indication: ASTHMA
     Dosage: 1 DOSE 1X PER 1 DAY
     Dates: start: 20040402, end: 20050205

REACTIONS (2)
  - DRUG EXPOSURE DURING PREGNANCY [None]
  - MICROPHTHALMOS [None]
